FAERS Safety Report 6823761-0 (Version None)
Quarter: 2010Q3

REPORT INFORMATION
  Report Type: 
  Country: None (occurrence: None)
  Receive Date: 20100708
  Receipt Date: 20070117
  Transmission Date: 20110219
  Serious: No
  Sender: FDA-Public Use
  Company Number: US-PFIZER INC-2006107210

PATIENT
  Sex: Female
  Weight: 72.57 kg

DRUGS (7)
  1. CHANTIX [Suspect]
     Indication: EX-TOBACCO USER
     Dates: start: 20060801
  2. LITHIUM CARBONATE [Concomitant]
  3. PROLIXIN [Concomitant]
  4. PROZAC [Concomitant]
  5. TENORETIC 100 [Concomitant]
  6. WELLBUTRIN [Concomitant]
  7. LOPID [Concomitant]

REACTIONS (4)
  - COUGH [None]
  - DRUG INEFFECTIVE [None]
  - DYSGEUSIA [None]
  - VISION BLURRED [None]
